FAERS Safety Report 11322357 (Version 1)
Quarter: 2015Q3

REPORT INFORMATION
  Report Type: Spontaneous
  Country: US (occurrence: None)
  Receive Date: 20150626
  Receipt Date: 20150626
  Transmission Date: 20151125
  Serious: No
  Sender: FDA-Public Use
  Company Number: 1000076886

PATIENT
  Age: 44 Year
  Sex: Female

DRUGS (1)
  1. LINACLOTIDE (LINACLOTIDE) [Suspect]
     Active Substance: LINACLOTIDE
     Indication: IRRITABLE BOWEL SYNDROME
     Dates: start: 20150518

REACTIONS (1)
  - Abdominal pain [None]

NARRATIVE: CASE EVENT DATE: 20150519
